FAERS Safety Report 18854781 (Version 6)
Quarter: 2021Q2

REPORT INFORMATION
  Report Type: Spontaneous
  Country: US (occurrence: US)
  Receive Date: 20210205
  Receipt Date: 20210414
  Transmission Date: 20210717
  Serious: Yes (Hospitalization, Other)
  Sender: FDA-Public Use
  Company Number: US-PFIZER INC-2021081358

PATIENT
  Age: 51 Year
  Sex: Female
  Weight: 59.41 kg

DRUGS (8)
  1. LEVOTHYROXIN [Concomitant]
     Active Substance: LEVOTHYROXINE
     Dosage: UNK
     Dates: start: 1984
  2. DEMEROL [Suspect]
     Active Substance: MEPERIDINE HYDROCHLORIDE
     Indication: ANALGESIC THERAPY
     Dosage: UNK
     Dates: start: 1986
  3. ADDERALL [Concomitant]
     Active Substance: AMPHETAMINE ASPARTATE\AMPHETAMINE SULFATE\DEXTROAMPHETAMINE SACCHARATE\DEXTROAMPHETAMINE SULFATE
     Dosage: UNK
     Dates: start: 2014
  4. TOPAMATE [Concomitant]
     Active Substance: TOPIRAMATE
     Dosage: UNK
     Dates: start: 2011
  5. VISTARIL [Suspect]
     Active Substance: HYDROXYZINE PAMOATE
     Indication: ANALGESIC THERAPY
     Dosage: UNK
     Dates: start: 1986
  6. ATENOLOL. [Concomitant]
     Active Substance: ATENOLOL
     Dosage: UNK
     Dates: start: 202010
  7. WELLBUTRIN [Concomitant]
     Active Substance: BUPROPION HYDROCHLORIDE
     Dosage: UNK
     Dates: start: 2015
  8. LISINOPRIL [LISINOPRIL DIHYDRATE] [Concomitant]
     Active Substance: LISINOPRIL
     Dosage: UNK
     Dates: start: 2017

REACTIONS (6)
  - Wound [Recovered/Resolved]
  - Skin exfoliation [Recovered/Resolved]
  - Sleep terror [Unknown]
  - Scar [Not Recovered/Not Resolved]
  - Fatigue [Not Recovered/Not Resolved]
  - Peripheral swelling [Recovered/Resolved]

NARRATIVE: CASE EVENT DATE: 1986
